FAERS Safety Report 7582427-2 (Version None)
Quarter: 2011Q2

REPORT INFORMATION
  Report Type: 
  Country: None (occurrence: None)
  Receive Date: 20110630
  Receipt Date: 20110623
  Transmission Date: 20111010
  Serious: Yes (Hospitalization)
  Sender: FDA-Public Use
  Company Number: CA-JNJFOC-20110610482

PATIENT
  Age: 17 Year
  Sex: Female
  Weight: 50.2 kg

DRUGS (3)
  1. NUCYNTA CR [Suspect]
     Indication: POST HERPETIC NEURALGIA
     Route: 048
  2. NUCYNTA CR [Suspect]
     Route: 048
  3. NUCYNTA CR [Suspect]
     Route: 048

REACTIONS (2)
  - DRUG ADMINISTERED TO PATIENT OF INAPPROPRIATE AGE [None]
  - DYSURIA [None]
